FAERS Safety Report 5033817-3 (Version None)
Quarter: 2006Q2

REPORT INFORMATION
  Report Type: 
  Country: None (occurrence: None)
  Receive Date: 20060620
  Receipt Date: 20060605
  Transmission Date: 20061013
  Serious: Yes (Death, Hospitalization)
  Sender: FDA-Public Use
  Company Number: 2006RR-02577

PATIENT
  Age: 71 Year
  Sex: Female
  Weight: 51 kg

DRUGS (14)
  1. CIPROFLOXACIN [Suspect]
     Dosage: QD, ORAL
     Route: 048
     Dates: start: 20060118, end: 20060128
  2. AMITRIPTYLINE TABLET (AMITRIPTYLINE) TABLET [Concomitant]
  3. AQUEOUS CREAM BP CREAM [Concomitant]
  4. BECLOMETHASONE DIPROPIONATE [Concomitant]
  5. COMBIVENT [Concomitant]
  6. METHYLPREDNISOLONE ACETATE [Concomitant]
  7. FOLIC ACID TABLET (FOLIC ACID) [Concomitant]
  8. HYDROXOCOBALAMIN [Concomitant]
  9. LANSOPRAZOLE [Concomitant]
  10. MEBEVERINE HYDROCHLORIDE [Concomitant]
  11. METHOCARBAMOL [Concomitant]
  12. PARACETAMOL CAPSULE (IBUPROFEN) CAPSULE [Concomitant]
  13. QUININE SULFATE [Concomitant]
  14. . [Concomitant]

REACTIONS (2)
  - BLISTER [None]
  - LEUKAEMIA PLASMACYTIC [None]
